FAERS Safety Report 9417021 (Version 2)
Quarter: 2013Q4

REPORT INFORMATION
  Report Type: Spontaneous
  Country: US (occurrence: None)
  Receive Date: 20130722
  Receipt Date: 20131112
  Transmission Date: 20140711
  Serious: Yes (Disabling, Other)
  Sender: FDA-Public Use
  Company Number: 1307-907

PATIENT
  Age: 49 Year
  Sex: Male

DRUGS (6)
  1. EYLEA [Suspect]
     Indication: AGE-RELATED MACULAR DEGENERATION
     Dosage: 2 MG, INTRAVITREAL
     Dates: start: 20130708
  2. FLONASE (FLUTICASONE PROPIONATE) [Concomitant]
  3. PAROXETINE PAROXETINE) [Concomitant]
  4. MIRAPEX (PRAMIPEXOLE DIHYDROCHLORIDE) [Concomitant]
  5. FLUTICASONE (FLUTICASONE) [Concomitant]
  6. FISH OIL (FISH OIL) [Concomitant]

REACTIONS (4)
  - Non-infectious endophthalmitis [None]
  - Visual acuity reduced [None]
  - Chills [None]
  - Nasopharyngitis [None]
